FAERS Safety Report 6691913-9 (Version None)
Quarter: 2010Q2

REPORT INFORMATION
  Report Type: 
  Country: None (occurrence: None)
  Receive Date: 20100422
  Receipt Date: 20100111
  Transmission Date: 20101027
  Serious: No
  Sender: FDA-Public Use
  Company Number: US-ASTRAZENECA-2010SE01225

PATIENT
  Sex: Male

DRUGS (2)
  1. METOPROLOL SUCCINATE [Suspect]
     Route: 048
     Dates: start: 20060101
  2. METOPROLOL SUCCINATE [Suspect]
     Route: 048
     Dates: start: 20091201

REACTIONS (1)
  - HEART RATE IRREGULAR [None]
